FAERS Safety Report 5445686-8 (Version None)
Quarter: 2007Q3

REPORT INFORMATION
  Report Type: 
  Country: None (occurrence: None)
  Receive Date: 20070904
  Receipt Date: 20070820
  Transmission Date: 20080115
  Serious: Yes (Other)
  Sender: FDA-Public Use
  Company Number: 2007BM000057

PATIENT
  Age: 14 Year
  Sex: Male
  Weight: 22 kg

DRUGS (8)
  1. NAGLAZYME [Suspect]
     Indication: MUCOPOLYSACCHARIDOSIS VI
     Dosage: 25 MG;QW;IV
     Route: 042
     Dates: start: 20041109
  2. FLUVOXAMINE MALEATE [Concomitant]
  3. ACETAZOLAMIDE [Concomitant]
  4. SUDAFED /00076392/ [Concomitant]
  5. ZANTAC 150 [Concomitant]
  6. SOLU-MEDROL [Concomitant]
  7. CLARITIN [Concomitant]
  8. BENADRYL [Concomitant]

REACTIONS (7)
  - INFUSION RELATED REACTION [None]
  - LIP SWELLING [None]
  - PARAESTHESIA [None]
  - PRURITUS [None]
  - SHOCK [None]
  - SWELLING [None]
  - THROAT TIGHTNESS [None]
